FAERS Safety Report 18686838 (Version 6)
Quarter: 2021Q1

REPORT INFORMATION
  Report Type: Report from Study
  Country: CA (occurrence: CA)
  Receive Date: 20201231
  Receipt Date: 20210330
  Transmission Date: 20210419
  Serious: Yes (Other)
  Sender: FDA-Public Use
  Company Number: CA-JNJFOC-20200734220

PATIENT
  Age: 32 Year
  Sex: Male
  Weight: 64 kg

DRUGS (7)
  1. PREDNISONE. [Concomitant]
     Active Substance: PREDNISONE
  2. REMICADE [Suspect]
     Active Substance: INFLIXIMAB
     Dosage: 10 MG/KG 6 IN 1 YEAR
     Route: 042
     Dates: start: 2020, end: 20200928
  3. REMICADE [Suspect]
     Active Substance: INFLIXIMAB
     Indication: CROHN^S DISEASE
     Dosage: 10 MG/KG DOSE START THEN WEEK 6 THEN Q. 8 WEEKS ON 27/JUL/2020 PATIENT RECEIVED 2ND INFUSION
     Route: 042
     Dates: start: 20200708
  4. IRON [Concomitant]
     Active Substance: IRON
     Indication: PRODUCT USED FOR UNKNOWN INDICATION
     Route: 065
  5. REMICADE [Suspect]
     Active Substance: INFLIXIMAB
     Indication: COLITIS ULCERATIVE
     Route: 042
     Dates: start: 2020
  6. REMICADE [Suspect]
     Active Substance: INFLIXIMAB
     Dosage: 10MG/KG EVERY 4 WEEKS.?ON 26?JAN?2021, THE PATIENT RECEIVED 8TH 670MG (10MG/KG) REMICADE INFUSION AN
     Route: 042
     Dates: start: 20200708, end: 20210222
  7. PREDNISONE. [Concomitant]
     Active Substance: PREDNISONE
     Indication: PRODUCT USED FOR UNKNOWN INDICATION
     Route: 065
     Dates: start: 20201016

REACTIONS (11)
  - Drug ineffective [Unknown]
  - Crohn^s disease [Not Recovered/Not Resolved]
  - Off label use [Unknown]
  - Incorrect drug administration rate [Unknown]
  - Colitis ulcerative [Not Recovered/Not Resolved]
  - Clostridium difficile infection [Recovered/Resolved]
  - Product use issue [Unknown]
  - Drug specific antibody present [Unknown]
  - Diarrhoea [Recovering/Resolving]
  - Campylobacter infection [Recovering/Resolving]
  - Constipation [Unknown]

NARRATIVE: CASE EVENT DATE: 2020
